FAERS Safety Report 4544106-5 (Version None)
Quarter: 2005Q1

REPORT INFORMATION
  Report Type: 
  Country: None (occurrence: None)
  Receive Date: 20050104
  Receipt Date: 19990224
  Transmission Date: 20050727
  Serious: Yes (Hospitalization)
  Sender: FDA-Public Use
  Company Number: JP-MERCK-99030684

PATIENT
  Age: 52 Year
  Sex: Female
  Weight: 66 kg

DRUGS (3)
  1. ALDOMET [Suspect]
     Indication: HYPERTENSION
     Route: 048
     Dates: start: 19970910, end: 19980721
  2. NIVADIL [Concomitant]
     Route: 048
     Dates: start: 19970910, end: 19980513
  3. URSO 250 [Concomitant]
     Route: 048
     Dates: start: 19980420, end: 19980722

REACTIONS (1)
  - HEPATOTOXICITY [None]
